FAERS Safety Report 15360726 (Version 2)
Quarter: 2018Q4

REPORT INFORMATION
  Report Type: Spontaneous
  Country: IT (occurrence: IT)
  Receive Date: 20180907
  Receipt Date: 20181108
  Transmission Date: 20190204
  Serious: Yes (Hospitalization, Other)
  Sender: FDA-Public Use
  Company Number: IT-AUROBINDO-AUR-APL-2018-044632

PATIENT
  Age: 16 Year
  Sex: Female
  Weight: 66 kg

DRUGS (1)
  1. PARACETAMOL [Suspect]
     Active Substance: ACETAMINOPHEN
     Indication: DRUG ABUSE
     Dosage: 12 GRAM IN TOTAL
     Route: 048
     Dates: start: 20180727, end: 20180727

REACTIONS (3)
  - Hypotension [Recovering/Resolving]
  - Overdose [Recovering/Resolving]
  - Suicide attempt [Recovering/Resolving]

NARRATIVE: CASE EVENT DATE: 20180727
